FAERS Safety Report 17244216 (Version 1)
Quarter: 2020Q1

REPORT INFORMATION
  Report Type: Report from Study
  Country: US (occurrence: US)
  Receive Date: 20200107
  Receipt Date: 20200107
  Transmission Date: 20200409
  Serious: Yes (Other)
  Sender: FDA-Public Use
  Company Number: US-GILEAD-2019-0444978

PATIENT
  Age: 77 Year
  Sex: Male

DRUGS (16)
  1. ADVIL 12HOUR [Concomitant]
     Active Substance: IBUPROFEN
  2. IDELALISIB [Suspect]
     Active Substance: IDELALISIB
     Indication: NON-HODGKIN^S LYMPHOMA
     Dosage: 150 MG, QD
     Route: 048
     Dates: start: 2011
  3. ISOSORBIDE MONONITRATE. [Concomitant]
     Active Substance: ISOSORBIDE MONONITRATE
  4. RANOLAZINE. [Concomitant]
     Active Substance: RANOLAZINE
  5. TOPROL XL [Concomitant]
     Active Substance: METOPROLOL SUCCINATE
  6. VALACICLOVIR [Concomitant]
     Active Substance: VALACYCLOVIR HYDROCHLORIDE
  7. PRAMIPEXOLE. [Concomitant]
     Active Substance: PRAMIPEXOLE
  8. METHOCARBAMOL. [Concomitant]
     Active Substance: METHOCARBAMOL
  9. CLOPIDOGREL [Concomitant]
     Active Substance: CLOPIDOGREL BISULFATE
  10. NYSTATIN. [Concomitant]
     Active Substance: NYSTATIN
  11. METHYLPREDNISOLONE. [Concomitant]
     Active Substance: METHYLPREDNISOLONE
  12. ROSUVASTATIN. [Concomitant]
     Active Substance: ROSUVASTATIN
  13. PREDNISONE. [Concomitant]
     Active Substance: PREDNISONE
  14. TRAMADOL. [Concomitant]
     Active Substance: TRAMADOL
  15. LATANOPROST. [Concomitant]
     Active Substance: LATANOPROST
  16. BACTRIM [Concomitant]
     Active Substance: SULFAMETHOXAZOLE\TRIMETHOPRIM

REACTIONS (4)
  - Skin exfoliation [Unknown]
  - Pain in extremity [Unknown]
  - Off label use [Unknown]
  - Nail disorder [Unknown]
